FAERS Safety Report 7161367-7 (Version None)
Quarter: 2010Q4

REPORT INFORMATION
  Report Type: 
  Country: None (occurrence: None)
  Receive Date: 20101215
  Receipt Date: 20101201
  Transmission Date: 20110411
  Serious: Yes (Hospitalization, Other)
  Sender: FDA-Public Use
  Company Number: US-RANBAXY-2010RR-40264

PATIENT
  Sex: Male

DRUGS (3)
  1. CIPROFLOXACIN [Suspect]
     Indication: ILL-DEFINED DISORDER
     Route: 065
  2. LEVAQUIN [Suspect]
     Indication: URINARY TRACT INFECTION
     Dosage: UNK
     Route: 048
     Dates: start: 20081101
  3. LEVAQUIN [Suspect]
     Indication: PROSTATE INFECTION

REACTIONS (3)
  - ROTATOR CUFF SYNDROME [None]
  - TENDON RUPTURE [None]
  - TENDONITIS [None]
